FAERS Safety Report 4633295-X (Version None)
Quarter: 2005Q2

REPORT INFORMATION
  Report Type: 
  Country: None (occurrence: None)
  Receive Date: 20050408
  Receipt Date: 20050330
  Transmission Date: 20051028
  Serious: Yes (Hospitalization)
  Sender: FDA-Public Use
  Company Number: 2005AP01044

PATIENT
  Age: 60 Year
  Sex: Female

DRUGS (13)
  1. FOSCAVIR [Suspect]
     Indication: CYTOMEGALOVIRUS INFECTION
     Dosage: 11 G DAILY IV
     Route: 042
     Dates: start: 20050118, end: 20050121
  2. PRIMPERAN TAB [Concomitant]
  3. CONCLYTE-K [Concomitant]
  4. DECADRON [Concomitant]
  5. OMEGACIN [Concomitant]
  6. ASPARA K [Concomitant]
  7. NEORAL [Concomitant]
  8. SOLANAX [Concomitant]
  9. BROCIN-CODEINE [Concomitant]
  10. TAKEPRON [Concomitant]
  11. PREDONINE [Concomitant]
  12. MUCODYNE [Concomitant]
  13. LOXONIN [Concomitant]

REACTIONS (8)
  - ANGIOPATHY [None]
  - CEREBRAL INFARCTION [None]
  - EOSINOPHIL COUNT INCREASED [None]
  - HEMIPLEGIA [None]
  - HYPOKALAEMIA [None]
  - MALAISE [None]
  - NAUSEA [None]
  - WHITE BLOOD CELL COUNT DECREASED [None]
